FAERS Safety Report 11634807 (Version 1)
Quarter: 2015Q4

REPORT INFORMATION
  Report Type: Spontaneous
  Country: US (occurrence: US)
  Receive Date: 20151015
  Receipt Date: 20151015
  Transmission Date: 20160304
  Serious: No
  Sender: FDA-Public Use
  Company Number: GXBR2015US001931

PATIENT
  Sex: Female
  Weight: 67.12 kg

DRUGS (2)
  1. CLOBETASOL PROPIONATE. [Suspect]
     Active Substance: CLOBETASOL PROPIONATE
     Indication: LICHEN SCLEROSUS
     Dosage: 0.05 DF, UNK
     Route: 065
     Dates: start: 201411, end: 201507
  2. ALLERGY MEDICATION [Concomitant]
     Active Substance: DIPHENHYDRAMINE HYDROCHLORIDE
     Indication: HYPERSENSITIVITY
     Dosage: UNK DF, PRN

REACTIONS (1)
  - Skin burning sensation [Recovered/Resolved]
